FAERS Safety Report 10670504 (Version 1)
Quarter: 2014Q4

REPORT INFORMATION
  Report Type: Spontaneous
  Country: IT (occurrence: None)
  Receive Date: 20141219
  Receipt Date: 20141219
  Transmission Date: 20150529
  Serious: Yes (Death)
  Sender: FDA-Public Use
  Company Number: FK201406226

PATIENT
  Age: 46 Year
  Sex: Female

DRUGS (2)
  1. TRIMETHOPRIM (TRIMETHOPRIM) [Concomitant]
     Active Substance: TRIMETHOPRIM
  2. MORPHINE [Suspect]
     Active Substance: MORPHINE
     Indication: DRUG ABUSE

REACTIONS (1)
  - Intentional overdose [None]
